FAERS Safety Report 21388951 (Version 1)
Quarter: 2022Q3

REPORT INFORMATION
  Report Type: Spontaneous
  Country: US (occurrence: US)
  Receive Date: 20220929
  Receipt Date: 20220929
  Transmission Date: 20221026
  Serious: Yes (Death, Life-Threatening, Hospitalization)
  Sender: FDA-Public Use
  Company Number: US-STRIDES ARCOLAB LIMITED-2022SP012368

PATIENT
  Age: 31 Year
  Sex: Male

DRUGS (2)
  1. TACROLIMUS [Suspect]
     Active Substance: TACROLIMUS
     Indication: Liver transplant
     Dosage: UNK, A TARGET TROUGH OF 3-5 NG/DL
     Route: 065
  2. TACROLIMUS [Suspect]
     Active Substance: TACROLIMUS
     Dosage: UNK, A TARGET TROUGH OF 5-7 NG/DL
     Route: 065

REACTIONS (5)
  - Multiple organ dysfunction syndrome [Fatal]
  - Haemophagocytic lymphohistiocytosis [Unknown]
  - Human herpesvirus 8 infection [Unknown]
  - Respiratory failure [Unknown]
  - Acute kidney injury [Unknown]
